FAERS Safety Report 8431742 (Version 23)
Quarter: 2014Q4

REPORT INFORMATION
  Report Type: Spontaneous
  Country: DE (occurrence: DE)
  Receive Date: 20120229
  Receipt Date: 20141205
  Transmission Date: 20150529
  Serious: Yes (Life-Threatening, Hospitalization)
  Sender: FDA-Public Use
  Company Number: DE-BIOGENIDEC-2012BI006109

PATIENT
  Age: 49 Year
  Sex: Female
  Weight: 75 kg

DRUGS (4)
  1. TYSABRI [Suspect]
     Active Substance: NATALIZUMAB
     Indication: MULTIPLE SCLEROSIS
     Route: 042
     Dates: start: 200803, end: 20120111
  2. DETRUSITOL [Concomitant]
     Active Substance: TOLTERODINE TARTRATE
     Indication: BLADDER DYSFUNCTION
     Dates: start: 2008
  3. MIRTAZAPINE. [Concomitant]
     Active Substance: MIRTAZAPINE
     Indication: DEPRESSION
     Route: 048
     Dates: end: 20120209
  4. DIBENZYRAN [Concomitant]
     Active Substance: PHENOXYBENZAMINE HYDROCHLORIDE
     Indication: BLADDER DYSFUNCTION
     Dates: start: 2008

REACTIONS (5)
  - Progressive multifocal leukoencephalopathy [Recovered/Resolved with Sequelae]
  - Restlessness [Recovered/Resolved]
  - Immune reconstitution inflammatory syndrome [Recovered/Resolved with Sequelae]
  - Anxiety [Recovered/Resolved]
  - Epilepsy [Not Recovered/Not Resolved]

NARRATIVE: CASE EVENT DATE: 200808
